FAERS Safety Report 9062108 (Version 2)
Quarter: 2013Q1

REPORT INFORMATION
  Report Type: Spontaneous
  Country: US (occurrence: US)
  Receive Date: 20130206
  Receipt Date: 20130304
  Transmission Date: 20140127
  Serious: Yes (Hospitalization)
  Sender: FDA-Public Use
  Company Number: US-ALEXION-A201300197

PATIENT
  Age: 20 None
  Sex: Female
  Weight: 69.39 kg

DRUGS (4)
  1. SOLIRIS 300MG [Suspect]
     Indication: PAROXYSMAL NOCTURNAL HAEMOGLOBINURIA
     Dosage: 900 MG, Q2W
     Route: 042
  2. FERROUS SULFATE [Concomitant]
  3. KEPPRA [Concomitant]
  4. DIAMOX [Concomitant]

REACTIONS (1)
  - Migraine [Recovering/Resolving]
